FAERS Safety Report 6339150-1 (Version None)
Quarter: 2009Q3

REPORT INFORMATION
  Report Type: 
  Country: None (occurrence: None)
  Receive Date: 20090903
  Receipt Date: 20090831
  Transmission Date: 20100115
  Serious: No
  Sender: FDA-Public Use
  Company Number: JP-AVENTIS-200912374JP

PATIENT
  Sex: Male

DRUGS (2)
  1. LASIX [Suspect]
     Indication: OEDEMA
     Route: 048
     Dates: start: 20090821
  2. LASIX [Suspect]
     Route: 048
     Dates: start: 20090821

REACTIONS (1)
  - FACIAL SPASM [None]
